FAERS Safety Report 5763265-X (Version None)
Quarter: 2008Q2

REPORT INFORMATION
  Report Type: 
  Country: None (occurrence: None)
  Receive Date: 20080604
  Receipt Date: 20080604
  Transmission Date: 20081010
  Serious: Yes (Hospitalization)
  Sender: FDA-Public Use
  Company Number: None

PATIENT
  Age: 89 Year
  Sex: Female

DRUGS (2)
  1. LYRICA [Suspect]
     Indication: ARTERIOSCLEROSIS
     Dosage: 25 MG TWICE DAILY PO
     Route: 048
     Dates: start: 20080325, end: 20080417
  2. LYRICA [Suspect]
     Indication: PAIN IN EXTREMITY
     Dosage: 25 MG TWICE DAILY PO
     Route: 048
     Dates: start: 20080325, end: 20080417

REACTIONS (5)
  - DIARRHOEA [None]
  - DIZZINESS [None]
  - DRUG INEFFECTIVE [None]
  - FALL [None]
  - HEAD INJURY [None]
